FAERS Safety Report 12908979 (Version 1)
Quarter: 2016Q4

REPORT INFORMATION
  Report Type: Spontaneous
  Country: US (occurrence: US)
  Receive Date: 20161103
  Receipt Date: 20161103
  Transmission Date: 20170207
  Serious: No
  Sender: FDA-Public Use
  Company Number: US-JAZZ-2016-US-016739

PATIENT
  Sex: Female

DRUGS (21)
  1. IBUPROFEN. [Concomitant]
     Active Substance: IBUPROFEN
  2. LEXAPRO [Concomitant]
     Active Substance: ESCITALOPRAM OXALATE
  3. ZOFRAN [Concomitant]
     Active Substance: ONDANSETRON HYDROCHLORIDE
  4. NORCO [Concomitant]
     Active Substance: ACETAMINOPHEN\HYDROCODONE BITARTRATE
  5. VITAMIN D [Concomitant]
     Active Substance: CHOLECALCIFEROL
  6. XYREM [Suspect]
     Active Substance: SODIUM OXYBATE
     Indication: NARCOLEPSY
     Dosage: 2.25 G, BID
     Route: 048
     Dates: start: 201401, end: 201404
  7. PHENTERMINE. [Concomitant]
     Active Substance: PHENTERMINE
  8. RITALIN [Concomitant]
     Active Substance: METHYLPHENIDATE HYDROCHLORIDE
  9. MAXALT [Concomitant]
     Active Substance: RIZATRIPTAN BENZOATE
  10. LASIX [Concomitant]
     Active Substance: FUROSEMIDE
  11. DIAZEPAM. [Concomitant]
     Active Substance: DIAZEPAM
  12. OMEGA 3 FISH OIL [Concomitant]
     Active Substance: FISH OIL\OMEGA-3 FATTY ACIDS
  13. ALPRAZOLAM. [Concomitant]
     Active Substance: ALPRAZOLAM
  14. MULTIVITAMINS [Concomitant]
     Active Substance: VITAMINS
  15. TOPAMAX [Concomitant]
     Active Substance: TOPIRAMATE
  16. XYREM [Suspect]
     Active Substance: SODIUM OXYBATE
     Dosage: 3 G, TID
     Route: 048
     Dates: start: 201512
  17. VALIUM [Concomitant]
     Active Substance: DIAZEPAM
  18. VICODIN [Concomitant]
     Active Substance: ACETAMINOPHEN\HYDROCODONE BITARTRATE
  19. XYREM [Suspect]
     Active Substance: SODIUM OXYBATE
     Indication: CATAPLEXY
     Dosage: DOSE ADJUSTMENTS
     Route: 048
     Dates: start: 201404, end: 201512
  20. PROZAC [Concomitant]
     Active Substance: FLUOXETINE HYDROCHLORIDE
  21. BENTYL [Concomitant]
     Active Substance: DICYCLOMINE HYDROCHLORIDE

REACTIONS (3)
  - Therapeutic response unexpected [Unknown]
  - Pre-existing condition improved [Unknown]
  - Sinusitis [Not Recovered/Not Resolved]
